FAERS Safety Report 8046788-2 (Version None)
Quarter: 2012Q1

REPORT INFORMATION
  Report Type: 
  Country: None (occurrence: None)
  Receive Date: 20120116
  Receipt Date: 20120106
  Transmission Date: 20120608
  Serious: No
  Sender: FDA-Public Use
  Company Number: US-BIOGENIDEC-2012BI000850

PATIENT
  Age: 45 Year
  Sex: Female

DRUGS (1)
  1. TYSABRI [Suspect]
     Indication: MULTIPLE SCLEROSIS
     Route: 042
     Dates: start: 20111031

REACTIONS (6)
  - SINUS DISORDER [None]
  - STRESS [None]
  - CHEST DISCOMFORT [None]
  - NASOPHARYNGITIS [None]
  - ABDOMINAL PAIN [None]
  - COUGH [None]
